FAERS Safety Report 7569032-9 (Version None)
Quarter: 2011Q2

REPORT INFORMATION
  Report Type: 
  Country: None (occurrence: None)
  Receive Date: 20110623
  Receipt Date: 20110621
  Transmission Date: 20111010
  Serious: Yes (Death, Hospitalization)
  Sender: FDA-Public Use
  Company Number: US-ABBOTT-11P-163-0733943-00

PATIENT
  Sex: Female

DRUGS (1)
  1. HUMIRA [Suspect]
     Indication: RHEUMATOID ARTHRITIS
     Route: 058
     Dates: start: 20040101, end: 20110201

REACTIONS (11)
  - CHILLS [None]
  - INJECTION SITE PAIN [None]
  - MULTI-ORGAN FAILURE [None]
  - HAEMORRHAGE [None]
  - DISEASE COMPLICATION [None]
  - ARTHRITIS INFECTIVE [None]
  - PYREXIA [None]
  - ASTHENIA [None]
  - PAIN [None]
  - ARTHRALGIA [None]
  - VOMITING [None]
